FAERS Safety Report 25082082 (Version 1)
Quarter: 2025Q1

REPORT INFORMATION
  Report Type: Spontaneous
  Country: CA (occurrence: CA)
  Receive Date: 20250317
  Receipt Date: 20250317
  Transmission Date: 20250409
  Serious: Yes (Other)
  Sender: INTERCEPT PHARMACEUTICALS
  Company Number: CA-ADVANZ PHARMA-202410008545

PATIENT
  Age: 68 Year
  Sex: Female

DRUGS (21)
  1. OCALIVA [Suspect]
     Active Substance: OBETICHOLIC ACID
     Indication: Primary biliary cholangitis
     Route: 048
     Dates: start: 20241001
  2. OCALIVA [Suspect]
     Active Substance: OBETICHOLIC ACID
     Dosage: 10 MILLIGRAM, QD
     Route: 048
  3. URSODIOL [Concomitant]
     Active Substance: URSODIOL
  4. URSODIOL [Concomitant]
     Active Substance: URSODIOL
  5. URSODIOL [Concomitant]
     Active Substance: URSODIOL
  6. URSODIOL [Concomitant]
     Active Substance: URSODIOL
  7. URSODIOL [Concomitant]
     Active Substance: URSODIOL
  8. URSODIOL [Concomitant]
     Active Substance: URSODIOL
  9. ROSUVASTATIN [Concomitant]
     Active Substance: ROSUVASTATIN
  10. ROSUVASTATIN [Concomitant]
     Active Substance: ROSUVASTATIN
  11. ROSUVASTATIN [Concomitant]
     Active Substance: ROSUVASTATIN
  12. ROSUVASTATIN [Concomitant]
     Active Substance: ROSUVASTATIN
  13. ROSUVASTATIN [Concomitant]
     Active Substance: ROSUVASTATIN
  14. ROSUVASTATIN [Concomitant]
     Active Substance: ROSUVASTATIN
  15. METFORMIN [Concomitant]
     Active Substance: METFORMIN HYDROCHLORIDE
  16. METFORMIN [Concomitant]
     Active Substance: METFORMIN HYDROCHLORIDE
  17. METFORMIN [Concomitant]
     Active Substance: METFORMIN HYDROCHLORIDE
  18. METFORMIN [Concomitant]
     Active Substance: METFORMIN HYDROCHLORIDE
  19. METFORMIN [Concomitant]
     Active Substance: METFORMIN HYDROCHLORIDE
  20. METFORMIN [Concomitant]
     Active Substance: METFORMIN HYDROCHLORIDE
  21. TELMISARTAN [Concomitant]
     Active Substance: TELMISARTAN

REACTIONS (19)
  - Pneumonia [Recovering/Resolving]
  - Gastrooesophageal reflux disease [Not Recovered/Not Resolved]
  - Skin plaque [Unknown]
  - Condition aggravated [Not Recovered/Not Resolved]
  - Aphonia [Not Recovered/Not Resolved]
  - Nasal congestion [Not Recovered/Not Resolved]
  - Cough [Not Recovered/Not Resolved]
  - Dry eye [Unknown]
  - Headache [Unknown]
  - Dry mouth [Unknown]
  - Dyspnoea [Recovered/Resolved]
  - Malaise [Unknown]
  - Osteoporosis [Unknown]
  - Ear pain [Unknown]
  - Drug intolerance [Unknown]
  - Influenza [Unknown]
  - Oropharyngeal pain [Unknown]
  - Fatigue [Unknown]
  - Pruritus [Unknown]

NARRATIVE: CASE EVENT DATE: 20241001
